FAERS Safety Report 22386893 (Version 1)
Quarter: 2023Q2

REPORT INFORMATION
  Report Type: Spontaneous
  Country: US (occurrence: US)
  Receive Date: 20230531
  Receipt Date: 20230531
  Transmission Date: 20230722
  Serious: Yes (Hospitalization, Disabling, Other)
  Sender: FDA-Public Use
  Company Number: US-drreddys-SPO/USA/23/0165914

PATIENT
  Age: 7 Year
  Sex: Male

DRUGS (1)
  1. DOXYCYCLINE [Suspect]
     Active Substance: DOXYCYCLINE
     Indication: Lyme disease

REACTIONS (3)
  - Condition aggravated [Unknown]
  - Blindness [Not Recovered/Not Resolved]
  - Intracranial pressure increased [Unknown]
